FAERS Safety Report 8815593 (Version 1)
Quarter: 2012Q4

REPORT INFORMATION
  Report Type: 
  Country: US (occurrence: US)
  Receive Date: 20120928
  Receipt Date: 20120928
  Transmission Date: 20130627
  Serious: Yes (Other)
  Sender: FDA-Public Use
  Company Number: US-ELI_LILLY_AND_COMPANY-US201209005868

PATIENT
  Sex: Female

DRUGS (2)
  1. HUMALOG LISPRO [Suspect]
     Indication: DIABETES MELLITUS
     Dosage: 17 u, tid
     Dates: start: 2002
  2. LANTUS [Concomitant]
     Dosage: 42 u, each morning

REACTIONS (2)
  - Cardiac pacemaker insertion [Unknown]
  - Cataract [Unknown]
